FAERS Safety Report 5821727-0 (Version None)
Quarter: 2008Q3

REPORT INFORMATION
  Report Type: 
  Country: None (occurrence: None)
  Receive Date: 20080724
  Receipt Date: 20080722
  Transmission Date: 20090109
  Serious: Yes (Hospitalization)
  Sender: FDA-Public Use
  Company Number: IT-GENENTECH-261617

PATIENT
  Sex: Female

DRUGS (4)
  1. RAPTIVA [Suspect]
     Indication: PSORIASIS
     Dosage: 0.8 ML, 1/WEEK
     Dates: start: 20070701, end: 20080430
  2. DULOXETINE HYDROCHLORIDE [Concomitant]
     Indication: DEPRESSION
     Dosage: 60 MG, QD
     Route: 048
  3. CLONAZEPAM [Concomitant]
     Indication: DEPRESSION
     Dosage: 10 DF, QD
     Route: 048
  4. LEVOMEPROMAZINE MALEATE [Concomitant]
     Indication: DEPRESSION
     Dosage: 100 MG, QD
     Route: 048

REACTIONS (3)
  - ARTHRALGIA [None]
  - DACTYLITIS [None]
  - GAIT DISTURBANCE [None]
